FAERS Safety Report 18451001 (Version 2)
Quarter: 2020Q4

REPORT INFORMATION
  Report Type: Spontaneous
  Country: US (occurrence: US)
  Receive Date: 20201101
  Receipt Date: 20201109
  Transmission Date: 20210114
  Serious: No
  Sender: FDA-Public Use
  Company Number: US-009507513-2010USA011562

PATIENT
  Age: 90 Year
  Sex: Male

DRUGS (11)
  1. UBIDECARENONE. [Concomitant]
     Active Substance: UBIDECARENONE
  2. ISOSORBIDE. [Concomitant]
     Active Substance: ISOSORBIDE
  3. TORSEMIDE. [Concomitant]
     Active Substance: TORSEMIDE
  4. COZAAR [Concomitant]
     Active Substance: LOSARTAN POTASSIUM
  5. VASCEPA [Concomitant]
     Active Substance: ICOSAPENT ETHYL
  6. ASPIRIN. [Concomitant]
     Active Substance: ASPIRIN
  7. PLAVIX [Concomitant]
     Active Substance: CLOPIDOGREL BISULFATE
  8. ATORVASTATIN [Concomitant]
     Active Substance: ATORVASTATIN
  9. PANTOPRAZOLE [Concomitant]
     Active Substance: PANTOPRAZOLE
  10. BELSOMRA [Suspect]
     Active Substance: SUVOREXANT
     Indication: INSOMNIA
     Dosage: 10 MILLIGRAM, ONCE NIGHTLY
     Route: 048
     Dates: start: 20201014
  11. METOPROLOL. [Concomitant]
     Active Substance: METOPROLOL

REACTIONS (1)
  - Drug ineffective [Unknown]

NARRATIVE: CASE EVENT DATE: 20201027
